FAERS Safety Report 4589335-X (Version None)
Quarter: 2005Q1

REPORT INFORMATION
  Report Type: 
  Country: None (occurrence: None)
  Receive Date: 20050216
  Receipt Date: 20050204
  Transmission Date: 20050727
  Serious: Yes (Hospitalization)
  Sender: FDA-Public Use
  Company Number: 2005AP00841

PATIENT
  Age: 64 Year
  Sex: Female

DRUGS (3)
  1. ATENOLOL [Suspect]
  2. ARANESP [Suspect]
     Dosage: 80 UG Q2WK IV
     Route: 042
     Dates: start: 20031127, end: 20031128
  3. DILTIAZEM HYDROCHLORIDE [Suspect]

REACTIONS (5)
  - ANOREXIA [None]
  - DEHYDRATION [None]
  - EMOTIONAL DISTRESS [None]
  - RASH GENERALISED [None]
  - RASH PRURITIC [None]
